FAERS Safety Report 5029175-0 (Version None)
Quarter: 2006Q2

REPORT INFORMATION
  Report Type: 
  Country: None (occurrence: None)
  Receive Date: 20060613
  Receipt Date: 20060517
  Transmission Date: 20061013
  Serious: Yes (Hospitalization)
  Sender: FDA-Public Use
  Company Number: 6022708

PATIENT
  Age: 73 Year
  Sex: Male

DRUGS (7)
  1. DETENSIEL (TABLET) (BISOPROLOL FUMARATE) [Suspect]
     Dosage: 0.5 MG, ORAL
     Route: 048
  2. IKOREL (NICORANDIL) [Suspect]
     Dosage: 10 MG, ORAL
     Route: 048
  3. CORVASAL (MOLSIDOMINE) [Suspect]
     Dosage: 6 MG, ORAL
     Route: 048
  4. PRAVASTATIN [Suspect]
     Dosage: 40 MG, ORAL
     Route: 048
  5. PROZAC [Suspect]
     Dosage: 20 MG, ORAL
     Route: 048
  6. TARCEVA [Suspect]
     Dosage: 150 MG, 125 MG, ORAL
     Route: 048
     Dates: start: 20051221, end: 20060105
  7. TARCEVA [Suspect]
     Dosage: 150 MG, 125 MG, ORAL
     Route: 048
     Dates: start: 20060113, end: 20060217

REACTIONS (8)
  - ASTHENIA [None]
  - DIARRHOEA [None]
  - DIZZINESS [None]
  - HYPOCAPNIA [None]
  - HYPOXIA [None]
  - INFLAMMATION [None]
  - INTERSTITIAL LUNG DISEASE [None]
  - LUNG NEOPLASM [None]
